FAERS Safety Report 8291113 (Version 4)
Quarter: 2013Q4

REPORT INFORMATION
  Report Type: Spontaneous
  Country: US (occurrence: None)
  Receive Date: 20111122
  Receipt Date: 20131226
  Transmission Date: 20140711
  Serious: No
  Sender: FDA-Public Use
  Company Number: PHHY2011US40131

PATIENT
  Age: 50 Year
  Sex: Female

DRUGS (1)
  1. GILENYA [Suspect]
     Indication: MULTIPLE SCLEROSIS
     Dosage: 0.5 MG, DAILY, ORAL; 0.5 MG, 1 PILL OF GILENYA WEEKLY, ORAL
     Route: 048
     Dates: start: 20110509, end: 20110515

REACTIONS (9)
  - Gait disturbance [None]
  - Fatigue [None]
  - Muscular weakness [None]
  - Arthralgia [None]
  - Incorrect dose administered [None]
  - Pruritus [None]
  - Dizziness [None]
  - Joint swelling [None]
  - Inappropriate schedule of drug administration [None]
